FAERS Safety Report 6362524-X (Version None)
Quarter: 2009Q3

REPORT INFORMATION
  Report Type: 
  Country: None (occurrence: None)
  Receive Date: 20090918
  Receipt Date: 20090603
  Transmission Date: 20100115
  Serious: No
  Sender: FDA-Public Use
  Company Number: US-ABBOTT-09P-163-0578046-00

PATIENT
  Sex: Female
  Weight: 81.72 kg

DRUGS (2)
  1. HUMIRA [Suspect]
     Indication: CROHN'S DISEASE
     Dates: start: 20070101
  2. ZOLOFT [Concomitant]
     Indication: DEPRESSION

REACTIONS (2)
  - DRUG DELIVERY SYSTEM MALFUNCTION [None]
  - DRUG DOSE OMISSION [None]
